FAERS Safety Report 20457999 (Version 1)
Quarter: 2022Q1

REPORT INFORMATION
  Report Type: Report from Study
  Country: TW (occurrence: TW)
  Receive Date: 20220211
  Receipt Date: 20220211
  Transmission Date: 20220424
  Serious: Yes (Hospitalization)
  Sender: FDA-Public Use
  Company Number: TW-ABBVIE-22K-153-4272506-00

PATIENT
  Age: 72 Year
  Sex: Male
  Weight: 50.9 kg

DRUGS (2)
  1. HUMIRA [Suspect]
     Active Substance: ADALIMUMAB
     Indication: Crohn^s disease
     Route: 058
     Dates: start: 20180322, end: 20220118
  2. HUMIRA [Suspect]
     Active Substance: ADALIMUMAB
     Indication: Crohn^s disease
     Route: 058
     Dates: start: 20121227, end: 20171102

REACTIONS (7)
  - C-reactive protein increased [Unknown]
  - White blood cell count increased [Unknown]
  - Postoperative wound infection [Unknown]
  - Crohn^s disease [Not Recovered/Not Resolved]
  - Abdominal infection [Not Recovered/Not Resolved]
  - Nausea [Not Recovered/Not Resolved]
  - Abdominal distension [Not Recovered/Not Resolved]

NARRATIVE: CASE EVENT DATE: 20220120
